FAERS Safety Report 7062052-2 (Version None)
Quarter: 2010Q4

REPORT INFORMATION
  Report Type: 
  Country: None (occurrence: None)
  Receive Date: 20101026
  Receipt Date: 20101020
  Transmission Date: 20110411
  Serious: Yes (Hospitalization)
  Sender: FDA-Public Use
  Company Number: A0887852A

PATIENT
  Age: 74 Year
  Sex: Male

DRUGS (22)
  1. ADVAIR DISKUS 100/50 [Suspect]
     Indication: PRODUCT USED FOR UNKNOWN INDICATION
     Dosage: 1PUFF TWICE PER DAY
     Route: 055
     Dates: start: 20100924, end: 20101019
  2. SPIRIVA [Concomitant]
  3. ACTOS [Concomitant]
  4. CLINORIL [Concomitant]
  5. GLIPIZIDE [Concomitant]
  6. FINASTERIDE [Concomitant]
  7. PLAVIX [Concomitant]
  8. JANUVIA [Concomitant]
  9. ALLOPURINOL [Concomitant]
  10. METOPROLOL [Concomitant]
  11. NEXIUM [Concomitant]
  12. SYNTHROID [Concomitant]
  13. LIPITOR [Concomitant]
  14. TERAZOSIN HCL [Concomitant]
  15. CICLOPIROX [Concomitant]
  16. MULTI-VITAMINS [Concomitant]
  17. ASPIRIN [Concomitant]
  18. METAMUCIL-2 [Concomitant]
  19. MAGNESIUM [Concomitant]
  20. FLAX SEED OIL [Concomitant]
  21. CALCIUM [Concomitant]
  22. STOOL SOFTENER [Concomitant]

REACTIONS (3)
  - CHEST DISCOMFORT [None]
  - CHEST PAIN [None]
  - OESOPHAGEAL SPASM [None]
